FAERS Safety Report 8084421-4 (Version None)
Quarter: 2012Q1

REPORT INFORMATION
  Report Type: 
  Country: None (occurrence: None)
  Receive Date: 20120128
  Receipt Date: 20110325
  Transmission Date: 20120608
  Serious: No
  Sender: FDA-Public Use
  Company Number: US-ABBOTT-11P-163-0714346-00

PATIENT
  Sex: Female
  Weight: 90.8 kg

DRUGS (5)
  1. HUMIRA [Suspect]
     Route: 058
     Dates: start: 20090101
  2. GLYBURIDE [Concomitant]
     Indication: DIABETES MELLITUS
  3. LISINOPRIL [Concomitant]
     Indication: HYPERTENSION
  4. HUMIRA [Suspect]
     Indication: RHEUMATOID ARTHRITIS
     Route: 058
     Dates: start: 20090101
  5. TOVIAZ [Concomitant]
     Indication: URINARY INCONTINENCE

REACTIONS (3)
  - INJECTION SITE HAEMATOMA [None]
  - PAIN [None]
  - INJECTION SITE NODULE [None]
